FAERS Safety Report 4845411-5 (Version None)
Quarter: 2005Q4

REPORT INFORMATION
  Report Type: 
  Country: None (occurrence: None)
  Receive Date: 20051125
  Receipt Date: 20051111
  Transmission Date: 20060501
  Serious: Yes (Death)
  Sender: FDA-Public Use
  Company Number: 2005157014

PATIENT
  Age: 64 Year
  Sex: Female

DRUGS (4)
  1. DOXORUBICIN HCL [Suspect]
     Indication: BREAST CANCER
     Dosage: 84 MG (84 MG, 1 IN 21 D), INTRAVENOUS
     Route: 042
     Dates: start: 20051102, end: 20051103
  2. CYCLOPHOSPHAMIDE [Concomitant]
  3. DEXAMETHASONE [Concomitant]
  4. ONDANSETRON [Concomitant]

REACTIONS (1)
  - ACUTE MYOCARDIAL INFARCTION [None]
